FAERS Safety Report 6627638-5 (Version None)
Quarter: 2010Q1

REPORT INFORMATION
  Report Type: 
  Country: None (occurrence: None)
  Receive Date: 20100308
  Receipt Date: 20100303
  Transmission Date: 20100710
  Serious: Yes (Hospitalization)
  Sender: FDA-Public Use
  Company Number: 2010SP013444

PATIENT
  Age: 73 Year
  Sex: Female

DRUGS (17)
  1. CELESTONE [Suspect]
     Indication: DRUG USE FOR UNKNOWN INDICATION
     Dosage: ;PO
     Route: 048
     Dates: start: 20080510, end: 20080518
  2. DESLORATADINE [Suspect]
     Indication: DRUG USE FOR UNKNOWN INDICATION
     Dosage: ;PO
     Route: 048
     Dates: start: 20080510, end: 20080518
  3. CEFPODOXIME PROXETIL [Suspect]
     Indication: DRUG USE FOR UNKNOWN INDICATION
     Dosage: ;PO
     Route: 048
     Dates: start: 20080510, end: 20080518
  4. TRAMADOL HCL [Suspect]
     Indication: DRUG USE FOR UNKNOWN INDICATION
     Dosage: 100 MG;BID;PO
     Route: 048
     Dates: end: 20080529
  5. NISIS [Concomitant]
  6. ESIDRIX [Concomitant]
  7. FUROSEMIDE [Concomitant]
  8. TAHOR [Concomitant]
  9. TRIVASTAL [Concomitant]
  10. CARDENSIEL [Concomitant]
  11. KARDEGIC [Concomitant]
  12. SEREVENT [Concomitant]
  13. FLIXOTIDE [Concomitant]
  14. VASTAREL [Concomitant]
  15. PARACETAMOL [Concomitant]
  16. HELICIDINE [Concomitant]
  17. OMEPRAZOLE [Concomitant]

REACTIONS (1)
  - HALLUCINATION, VISUAL [None]
